FAERS Safety Report 4366318-6 (Version None)
Quarter: 2004Q2

REPORT INFORMATION
  Report Type: 
  Country: None (occurrence: None)
  Receive Date: 20040526
  Receipt Date: 20040526
  Transmission Date: 20050107
  Serious: Yes (Hospitalization)
  Sender: FDA-Public Use
  Company Number: None

PATIENT
  Age: 70 Year
  Sex: Male
  Weight: 77.1115 kg

DRUGS (3)
  1. VINCRISTINE [Suspect]
     Indication: MULTIPLE MYELOMA
     Dosage: 0.4 MG DAILY/ LAST CYCLE
     Dates: start: 20030818, end: 20030821
  2. DOXORUBICIN HCL [Suspect]
     Dosage: 9 MG/M2 DAILY/ LAST CYCLE
     Dates: start: 20030818, end: 20030821
  3. DEXAMETHASONE [Suspect]

REACTIONS (5)
  - BILE DUCT NECROSIS [None]
  - CHROMATURIA [None]
  - HEPATIC FIBROSIS [None]
  - HEPATIC STEATOSIS [None]
  - HEPATOTOXICITY [None]
